FAERS Safety Report 8613295-5 (Version None)
Quarter: 2012Q3

REPORT INFORMATION
  Report Type: 
  Country: None (occurrence: None)
  Receive Date: 20120822
  Receipt Date: 20120720
  Transmission Date: 20120928
  Serious: No
  Sender: FDA-Public Use
  Company Number: US-009507513-2012SP018965

PATIENT

DRUGS (11)
  1. TAMSULOSIN HYDROCHLORIDE [Concomitant]
     Indication: PRODUCT USED FOR UNKNOWN INDICATION
     Dosage: 0.4 MG, UNKNOWN
     Route: 065
  2. HYDROXYZINE HYDROCHLORIDE [Concomitant]
     Indication: PRODUCT USED FOR UNKNOWN INDICATION
     Dosage: 10 MG, UNKNOWN
     Route: 065
  3. PROSCAR [Concomitant]
     Indication: PRODUCT USED FOR UNKNOWN INDICATION
     Dosage: 5 MG, UNKNOWN
     Route: 065
  4. RIBASPHERE [Suspect]
     Dosage: 3 DF, QD
  5. PEGASYS [Suspect]
     Indication: PRODUCT USED FOR UNKNOWN INDICATION
     Dosage: 180 MG, UNKNOWN
     Route: 065
  6. BOCEPREVIR [Suspect]
     Indication: PRODUCT USED FOR UNKNOWN INDICATION
     Dosage: 800 MG, TID
     Route: 048
  7. ELTROMBOPAG OLAMINE [Concomitant]
     Indication: PRODUCT USED FOR UNKNOWN INDICATION
     Dosage: 25 MG, UNKNOWN
     Route: 065
  8. MULTAMIN [Concomitant]
     Indication: PRODUCT USED FOR UNKNOWN INDICATION
  9. PROPRANOLOL HYDROCHLORIDE [Concomitant]
     Indication: PRODUCT USED FOR UNKNOWN INDICATION
     Dosage: 160 MG, UNKNOWN
     Route: 065
  10. PRILOSEC [Concomitant]
     Indication: PRODUCT USED FOR UNKNOWN INDICATION
     Dosage: 20 MG, UNKNOWN
     Route: 065
  11. RIBASPHERE [Suspect]
     Indication: PRODUCT USED FOR UNKNOWN INDICATION
     Dosage: 600 MG, UNKNOWN
     Route: 065

REACTIONS (5)
  - INSOMNIA [None]
  - PLATELET COUNT DECREASED [None]
  - ANAEMIA [None]
  - NAUSEA [None]
  - WHITE BLOOD CELL COUNT DECREASED [None]
